FAERS Safety Report 25206197 (Version 2)
Quarter: 2025Q2

REPORT INFORMATION
  Report Type: Report from Study
  Country: US (occurrence: US)
  Receive Date: 20250417
  Receipt Date: 20250502
  Transmission Date: 20250716
  Serious: Yes (Hospitalization)
  Sender: EISAI
  Company Number: US-Eisai-EC-2025-187291

PATIENT
  Age: 78 Year
  Sex: Male

DRUGS (3)
  1. LENVIMA [Suspect]
     Active Substance: LENVATINIB
     Indication: Hepatocellular carcinoma
     Dates: start: 20250401, end: 20250406
  2. LENVIMA [Suspect]
     Active Substance: LENVATINIB
     Dates: start: 20250423
  3. LACTULOSE [Concomitant]
     Active Substance: LACTULOSE

REACTIONS (5)
  - Ammonia increased [Recovering/Resolving]
  - Confusional state [Recovering/Resolving]
  - Hepatic artery thrombosis [Unknown]
  - Abdominal pain [Unknown]
  - Gastrooesophageal reflux disease [Unknown]

NARRATIVE: CASE EVENT DATE: 20250401
